FAERS Safety Report 11179574 (Version 1)
Quarter: 2015Q2

REPORT INFORMATION
  Report Type: Spontaneous
  Country: US (occurrence: US)
  Receive Date: 20150611
  Receipt Date: 20150611
  Transmission Date: 20150821
  Serious: No
  Sender: FDA-Public Use
  Company Number: US-AMGEN-USASP2015054199

PATIENT
  Age: 53 Year
  Sex: Female

DRUGS (1)
  1. ENBREL [Suspect]
     Active Substance: ETANERCEPT
     Indication: RHEUMATOID ARTHRITIS
     Dosage: 50 MG, QWK
     Route: 058
     Dates: start: 20150105, end: 20150522

REACTIONS (8)
  - Disturbance in attention [Unknown]
  - Injection site bruising [Unknown]
  - Injection site swelling [Unknown]
  - Dizziness [Unknown]
  - Fatigue [Unknown]
  - Injection site pain [Unknown]
  - Abdominal distension [Unknown]
  - Malaise [Unknown]
